FAERS Safety Report 4549159-6 (Version None)
Quarter: 2005Q1

REPORT INFORMATION
  Report Type: 
  Country: None (occurrence: None)
  Receive Date: 20050106
  Receipt Date: 20041027
  Transmission Date: 20050727
  Serious: Yes (Hospitalization)
  Sender: FDA-Public Use
  Company Number: 206919

PATIENT
  Age: 55 Year
  Sex: Female
  Weight: 72.5755 kg

DRUGS (9)
  1. AVONEX [Suspect]
     Indication: MULTIPLE SCLEROSIS
     Dosage: 30 UG; QW; IM
     Route: 030
     Dates: start: 20010101, end: 20040901
  2. AVONEX [Suspect]
     Indication: MULTIPLE SCLEROSIS
     Dosage: 30 UG; QW; IM
     Route: 030
     Dates: start: 20041001
  3. CELEXA [Concomitant]
  4. AMANTADINE [Concomitant]
  5. SINGULAIR [Concomitant]
  6. BACLOFEN [Concomitant]
  7. ZYRTEC [Concomitant]
  8. NORVASC [Concomitant]
  9. ALBUTEROL [Concomitant]

REACTIONS (7)
  - ASTHMA [None]
  - BLADDER DISORDER [None]
  - CONDITION AGGRAVATED [None]
  - DEPRESSION [None]
  - HYPERCHOLESTEROLAEMIA [None]
  - LOSS OF CONSCIOUSNESS [None]
  - PAIN [None]
